FAERS Safety Report 7206819-6 (Version None)
Quarter: 2011Q1

REPORT INFORMATION
  Report Type: 
  Country: None (occurrence: None)
  Receive Date: 20110103
  Receipt Date: 20101223
  Transmission Date: 20110831
  Serious: Yes (Other)
  Sender: FDA-Public Use
  Company Number: US-SANOFI-AVENTIS-2010SA073658

PATIENT
  Age: 79 Year
  Sex: Male
  Weight: 63.5 kg

DRUGS (1)
  1. LANTUS [Suspect]
     Dosage: 1-14 UNITS
     Route: 058
     Dates: start: 20100101

REACTIONS (3)
  - PANCREATIC CYST [None]
  - PAIN [None]
  - EXPIRED DRUG ADMINISTERED [None]
